FAERS Safety Report 22060161 (Version 1)
Quarter: 2023Q1

REPORT INFORMATION
  Report Type: Spontaneous
  Country: MX (occurrence: None)
  Receive Date: 20230302
  Receipt Date: 20230302
  Transmission Date: 20230417
  Serious: Yes (Disabling)
  Sender: FDA-Public Use
  Company Number: None

PATIENT
  Age: 54 Year
  Sex: Female
  Weight: 50 kg

DRUGS (5)
  1. ROSUVASTATIN [Suspect]
     Active Substance: ROSUVASTATIN
     Indication: Blood cholesterol increased
     Dosage: 1 TABLET AT BEDTIME ORAL
     Route: 048
     Dates: start: 20220119, end: 20220907
  2. BETAMETHASONE [Concomitant]
     Active Substance: BETAMETHASONE
  3. INDOMETHACIN [Concomitant]
     Active Substance: INDOMETHACIN
  4. Metocarbamol C?psulas 0.75 mg. - 25 mg. - 215 mg [Concomitant]
  5. Hydrolized collage, one sachet per day [Concomitant]

REACTIONS (2)
  - Ligament rupture [None]
  - Arthritis [None]

NARRATIVE: CASE EVENT DATE: 20220814
